FAERS Safety Report 7237917-9 (Version None)
Quarter: 2011Q1

REPORT INFORMATION
  Report Type: 
  Country: None (occurrence: None)
  Receive Date: 20110121
  Receipt Date: 20110114
  Transmission Date: 20110831
  Serious: No
  Sender: FDA-Public Use
  Company Number: CH-BRACCO-000052

PATIENT
  Age: 82 Year
  Sex: Male

DRUGS (2)
  1. MULTIHANCE [Suspect]
     Indication: DIZZINESS
     Route: 042
     Dates: start: 20101204, end: 20101204
  2. MULTIHANCE [Suspect]
     Indication: NUCLEAR MAGNETIC RESONANCE IMAGING
     Route: 042
     Dates: start: 20101204, end: 20101204

REACTIONS (3)
  - PRURITUS [None]
  - RASH [None]
  - STOMATITIS [None]
